FAERS Safety Report 19521973 (Version 1)
Quarter: 2021Q3

REPORT INFORMATION
  Report Type: Spontaneous
  Country: PL (occurrence: PL)
  Receive Date: 20210712
  Receipt Date: 20210712
  Transmission Date: 20211014
  Serious: Yes (Other)
  Sender: FDA-Public Use
  Company Number: PL-MYLANLABS-2021M1040437

PATIENT
  Age: 48 Year
  Sex: Male

DRUGS (6)
  1. METHOTREXATE. [Suspect]
     Active Substance: METHOTREXATE
     Dosage: 15 MILLIGRAM, QW
     Route: 065
  2. METHOTREXATE. [Suspect]
     Active Substance: METHOTREXATE
     Dosage: 15 MILLIGRAM, QW
     Route: 065
  3. METHOTREXATE. [Suspect]
     Active Substance: METHOTREXATE
     Indication: PSORIATIC ARTHROPATHY
     Dosage: 25 MILLIGRAM, QW
     Route: 065
     Dates: end: 2019
  4. ADALIMUMAB [Suspect]
     Active Substance: ADALIMUMAB
     Indication: PSORIASIS
  5. ADALIMUMAB [Suspect]
     Active Substance: ADALIMUMAB
     Indication: PSORIATIC ARTHROPATHY
     Dosage: INITIAL DOSE 80 MG, AND 40 MG SEVEN DAYS AFTER THE FIRST DOSE, AND THEN 40 MG EVERY 14 DAYS
     Route: 065
     Dates: start: 202004
  6. CYCLOSPORINE. [Suspect]
     Active Substance: CYCLOSPORINE
     Indication: PSORIATIC ARTHROPATHY
     Dosage: 100 MILLIGRAM, QD
     Route: 065

REACTIONS (11)
  - Diarrhoea [Unknown]
  - Ocular hyperaemia [Recovered/Resolved]
  - Iridocyclitis [Recovered/Resolved]
  - Arthralgia [Recovered/Resolved]
  - Oedema peripheral [Unknown]
  - Nausea [Unknown]
  - Drug ineffective [Recovering/Resolving]
  - Eye pain [Recovered/Resolved]
  - Dizziness [Unknown]
  - Arthritis [Unknown]
  - Pain in extremity [Unknown]
